FAERS Safety Report 17792527 (Version 1)
Quarter: 2020Q2

REPORT INFORMATION
  Report Type: Spontaneous
  Country: NO (occurrence: NO)
  Receive Date: 20200515
  Receipt Date: 20200515
  Transmission Date: 20200714
  Serious: Yes (Hospitalization)
  Sender: FDA-Public Use
  Company Number: NO-SHIRE-NO202016023

PATIENT

DRUGS (1)
  1. ADUVANZ [Suspect]
     Active Substance: LISDEXAMFETAMINE DIMESYLATE
     Indication: ATTENTION DEFICIT HYPERACTIVITY DISORDER
     Dosage: 30 MILLIGRAM, 2X/DAY:BID
     Route: 065

REACTIONS (6)
  - Hypersensitivity [Unknown]
  - Stress [Unknown]
  - Muscle spasms [Unknown]
  - Food craving [Unknown]
  - Therapeutic response shortened [Unknown]
  - Off label use [Unknown]
